FAERS Safety Report 5744808-9 (Version None)
Quarter: 2008Q2

REPORT INFORMATION
  Report Type: 
  Country: None (occurrence: None)
  Receive Date: 20080520
  Receipt Date: 20080508
  Transmission Date: 20081010
  Serious: Yes (Other)
  Sender: FDA-Public Use
  Company Number: FI-PFIZER INC-2008041012

PATIENT
  Sex: Male

DRUGS (2)
  1. LYRICA [Suspect]
     Indication: PAIN
  2. LAMICTAL [Suspect]
     Indication: EPILEPSY

REACTIONS (5)
  - CONVULSION [None]
  - DIZZINESS [None]
  - MEMORY IMPAIRMENT [None]
  - PAIN [None]
  - VOMITING [None]
